FAERS Safety Report 10063355 (Version 1)
Quarter: 2014Q2

REPORT INFORMATION
  Report Type: Spontaneous
  Country: PE (occurrence: PE)
  Receive Date: 20140407
  Receipt Date: 20140407
  Transmission Date: 20141212
  Serious: Yes (Death, Life-Threatening, Hospitalization)
  Sender: FDA-Public Use
  Company Number: PE-B.I. PHARMACEUTICALS,INC./RIDGEFIELD-2014-BI-15104PE

PATIENT
  Age: 64 Year
  Sex: Male

DRUGS (4)
  1. PRADAXA [Suspect]
     Indication: CEREBROVASCULAR ACCIDENT PROPHYLAXIS
     Dosage: 220 MG
     Route: 048
     Dates: start: 201308, end: 201403
  2. PRADAXA [Suspect]
     Indication: EMBOLISM
  3. PRADAXA [Suspect]
     Indication: ATRIAL FIBRILLATION
  4. ANTIHYPERTENSIVES [Concomitant]
     Indication: HYPERTENSION
     Route: 048
     Dates: end: 201403

REACTIONS (3)
  - Cardiac failure [Fatal]
  - Hypotension [Fatal]
  - Tachyarrhythmia [Fatal]
